FAERS Safety Report 12774126 (Version 1)
Quarter: 2016Q3

REPORT INFORMATION
  Report Type: Spontaneous
  Country: BR (occurrence: BR)
  Receive Date: 20160923
  Receipt Date: 20160923
  Transmission Date: 20161109
  Serious: Yes (Other)
  Sender: FDA-Public Use
  Company Number: BR-ROCHE-1832696

PATIENT
  Sex: Female

DRUGS (2)
  1. RIVOTRIL [Suspect]
     Active Substance: CLONAZEPAM
     Indication: PRODUCT USED FOR UNKNOWN INDICATION
     Route: 065
  2. RIVOTRIL [Suspect]
     Active Substance: CLONAZEPAM
     Route: 065

REACTIONS (11)
  - Fall [Unknown]
  - Dizziness [Unknown]
  - Malaise [Not Recovered/Not Resolved]
  - Muscular weakness [Not Recovered/Not Resolved]
  - Memory impairment [Unknown]
  - Asthenia [Unknown]
  - Nervousness [Unknown]
  - Syncope [Unknown]
  - Somnolence [Unknown]
  - Apathy [Unknown]
  - Amnesia [Unknown]
